FAERS Safety Report 4393290-5 (Version None)
Quarter: 2004Q3

REPORT INFORMATION
  Report Type: 
  Country: None (occurrence: None)
  Receive Date: 20040708
  Receipt Date: 20020516
  Transmission Date: 20050211
  Serious: Yes (Hospitalization, Other)
  Sender: FDA-Public Use
  Company Number: US-MERCK-0205USA02059

PATIENT
  Age: 80 Year
  Sex: Male
  Weight: 77 kg

DRUGS (20)
  1. TYLENOL W/ CODEINE [Concomitant]
     Route: 065
  2. DOMEBORO [Concomitant]
     Route: 001
  3. AMOXICILLIN [Concomitant]
     Route: 065
  4. AUGMENTIN [Concomitant]
     Route: 065
  5. LOTRISONE [Concomitant]
     Route: 065
  6. CLONAZEPAM [Concomitant]
     Route: 065
  7. DIABETA [Concomitant]
     Route: 048
  8. LACTULOSE [Concomitant]
     Route: 065
  9. PREVACID [Concomitant]
     Route: 065
  10. LEVOBUNOLOL HYDROCHLORIDE [Concomitant]
     Route: 047
  11. ZESTRIL [Concomitant]
     Route: 065
  12. REGLAN [Concomitant]
     Route: 065
  13. ACIPHEX [Concomitant]
     Route: 065
  14. RANITIDINE [Concomitant]
     Route: 048
  15. VIOXX [Suspect]
     Indication: ARTHRITIS
     Route: 048
     Dates: start: 19991124, end: 20010801
  16. TRIAMCINOLONE [Concomitant]
     Route: 065
  17. TRIAMTERENE [Concomitant]
     Route: 065
  18. VITAMIN E [Concomitant]
     Route: 065
  19. COUMADIN [Concomitant]
     Indication: BLOOD DISORDER
     Route: 065
     Dates: start: 19930101
  20. COUMADIN [Concomitant]
     Route: 065
     Dates: start: 19930101

REACTIONS (17)
  - ABDOMINAL PAIN [None]
  - ASTHENIA [None]
  - BLOOD DISORDER [None]
  - BLOOD GLUCOSE DECREASED [None]
  - BLOOD SODIUM DECREASED [None]
  - CONSTIPATION [None]
  - DIZZINESS [None]
  - FALL [None]
  - GASTRIC DISORDER [None]
  - GASTROINTESTINAL DISORDER [None]
  - HYPERTENSION [None]
  - LUMBAR SPINAL STENOSIS [None]
  - MYOCARDIAL INFARCTION [None]
  - NAUSEA [None]
  - PNEUMONIA [None]
  - SKIN INFECTION [None]
  - SLEEP DISORDER [None]
